FAERS Safety Report 9857401 (Version 1)
Quarter: 2014Q1

REPORT INFORMATION
  Report Type: Spontaneous
  Country: JP (occurrence: JP)
  Receive Date: 20140131
  Receipt Date: 20140131
  Transmission Date: 20141002
  Serious: Yes (Other)
  Sender: FDA-Public Use
  Company Number: JP-PFIZER INC-2014027443

PATIENT
  Age: 51 Year
  Sex: Female
  Weight: 70 kg

DRUGS (1)
  1. CELECOX [Suspect]
     Dosage: 2400 MG, DAILY
     Route: 048
     Dates: start: 20140117, end: 20140117

REACTIONS (4)
  - Suicide attempt [Unknown]
  - Coma [Unknown]
  - Glossoptosis [Unknown]
  - Intentional overdose [Unknown]
